FAERS Safety Report 13610910 (Version 1)
Quarter: 2017Q2

REPORT INFORMATION
  Report Type: Spontaneous
  Country: US (occurrence: US)
  Receive Date: 20170604
  Receipt Date: 20170604
  Transmission Date: 20170830
  Serious: Yes (Hospitalization)
  Sender: FDA-Public Use
  Company Number: None

PATIENT
  Age: 37 Year
  Sex: Female

DRUGS (21)
  1. XOLAIR [Suspect]
     Active Substance: OMALIZUMAB
     Indication: ASTHMA
     Dosage: FREQUENCY - Q 2 WEEKS
     Route: 058
  2. ALPRAZOLAM. [Concomitant]
     Active Substance: ALPRAZOLAM
  3. ADVAIR HFA [Concomitant]
     Active Substance: FLUTICASONE PROPIONATE\SALMETEROL XINAFOATE
  4. HCTZ [Concomitant]
     Active Substance: HYDROCHLOROTHIAZIDE
  5. FLONASE [Concomitant]
     Active Substance: FLUTICASONE PROPIONATE
  6. GABAPENTIN. [Concomitant]
     Active Substance: GABAPENTIN
  7. PREDNISONE. [Concomitant]
     Active Substance: PREDNISONE
  8. ALBUTEROL. [Concomitant]
     Active Substance: ALBUTEROL
  9. TRAMADOL. [Concomitant]
     Active Substance: TRAMADOL
  10. LANSOPRAZOLE. [Concomitant]
     Active Substance: LANSOPRAZOLE
  11. BUDESONIDE. [Concomitant]
     Active Substance: BUDESONIDE
  12. LIDODERM [Concomitant]
     Active Substance: LIDOCAINE
  13. EPIPEN [Concomitant]
     Active Substance: EPINEPHRINE
  14. CARAFATE [Concomitant]
     Active Substance: SUCRALFATE
  15. XANAX [Concomitant]
     Active Substance: ALPRAZOLAM
  16. PHENERGAN W/CODEINE SYRUP [Concomitant]
  17. SEROQUEL XR [Concomitant]
     Active Substance: QUETIAPINE FUMARATE
  18. HYDROCODONE BITARTRATE AND ACETAMINOPHEN [Concomitant]
     Active Substance: ACETAMINOPHEN\HYDROCODONE BITARTRATE
  19. METHYLPREDNISONE [Concomitant]
     Active Substance: METHYLPREDNISOLONE
  20. VENTOLIN HFA [Concomitant]
     Active Substance: ALBUTEROL SULFATE
  21. ZYRTEC [Concomitant]
     Active Substance: CETIRIZINE HYDROCHLORIDE

REACTIONS (3)
  - Hospitalisation [None]
  - Insurance issue [None]
  - Dyspnoea [None]

NARRATIVE: CASE EVENT DATE: 20170602
